FAERS Safety Report 10601876 (Version 1)
Quarter: 2014Q4

REPORT INFORMATION
  Report Type: Spontaneous
  Country: US (occurrence: US)
  Receive Date: 20141124
  Receipt Date: 20141124
  Transmission Date: 20150529
  Serious: No
  Sender: FDA-Public Use
  Company Number: US-MYLANLABS-2014S1013604

PATIENT
  Sex: Female

DRUGS (1)
  1. TRIAMTERENE AND HYDROCHLOROTHIAZIDE [Suspect]
     Active Substance: HYDROCHLOROTHIAZIDE\TRIAMTERENE
     Dosage: UNK
     Dates: start: 201108

REACTIONS (2)
  - Paraesthesia [Not Recovered/Not Resolved]
  - Oedema peripheral [Not Recovered/Not Resolved]
